FAERS Safety Report 24223528 (Version 2)
Quarter: 2025Q2

REPORT INFORMATION
  Report Type: Spontaneous
  Country: US (occurrence: US)
  Receive Date: 20240819
  Receipt Date: 20250519
  Transmission Date: 20250716
  Serious: No
  Sender: MARIUS PHARMACEUTICALS
  Company Number: US-MARIUS PHARMACEUTICALS, LLC-2024US001564

PATIENT

DRUGS (1)
  1. KYZATREX [Suspect]
     Active Substance: TESTOSTERONE UNDECANOATE
     Indication: Product used for unknown indication
     Dosage: 2X200 MG TWICE A DAY

REACTIONS (4)
  - Weight increased [Unknown]
  - Acne [Unknown]
  - Testicular atrophy [Unknown]
  - Dehydroepiandrosterone increased [Unknown]
